FAERS Safety Report 8932864 (Version 1)
Quarter: 2012Q4

REPORT INFORMATION
  Report Type: Report from Study
  Country: GB (occurrence: GB)
  Receive Date: 20121128
  Receipt Date: 20121128
  Transmission Date: 20130627
  Serious: Yes (Death, Other)
  Sender: FDA-Public Use
  Company Number: GB-OTSUKA-EU-2012-10125

PATIENT
  Sex: Female
  Weight: 46 kg

DRUGS (13)
  1. SAMSCA [Suspect]
     Indication: INAPPROPRIATE ANTIDIURETIC HORMONE SECRETION
     Dosage: 15 Mg milligram(s), daily dose
     Route: 048
     Dates: start: 20120319, end: 20120321
  2. SALINE [Concomitant]
     Dosage: 154 mEq, daily dose
     Route: 065
     Dates: start: 20120322, end: 20120326
  3. BISOPROLOL [Concomitant]
     Indication: MYOCARDIAL ISCHAEMIA
     Dosage: 5 Mg milligram(s), daily dose
     Route: 048
     Dates: start: 2009
  4. WARFARIN [Concomitant]
     Indication: ATRIAL FIBRILLATION
     Dosage: 3 Mg milligram(s), daily dose
     Route: 048
     Dates: start: 2009, end: 20120316
  5. NICORANDILE [Concomitant]
     Indication: MYOCARDIAL ISCHAEMIA
     Dosage: 20 Mg milligram(s), daily dose
     Route: 048
     Dates: start: 2009, end: 20120322
  6. ISOSORBIDE MONONITRATE [Concomitant]
     Indication: MYOCARDIAL ISCHAEMIA
     Dosage: 40 Mg milligram(s), daily dose
     Route: 048
     Dates: start: 2009, end: 20120322
  7. ATORVASTATIN [Concomitant]
     Indication: MYOCARDIAL ISCHAEMIA
     Dosage: 80 Mg milligram(s), daily dose
     Route: 048
     Dates: start: 2009, end: 20120322
  8. ASPIRIN [Concomitant]
     Indication: MYOCARDIAL ISCHAEMIA
     Dosage: 75 Mg milligram(s), daily dose
     Route: 048
     Dates: start: 2009, end: 20120322
  9. OMEPRAZOLE [Concomitant]
     Indication: PROPHYLAXIS
     Dosage: 40 Mg milligram(s), daily dose
     Route: 048
     Dates: start: 20120312, end: 20120314
  10. ADCAL D3 [Concomitant]
     Indication: OSTEOPOROSIS
     Dosage: 800 Iu, daily dose
     Route: 048
     Dates: start: 2009
  11. TRIMETHOPRIM [Concomitant]
     Indication: URINARY TRACT INFECTION
     Dosage: 400 Mg milligram(s), daily dose
     Route: 048
     Dates: start: 20120315, end: 20120320
  12. ERTAPENEM [Concomitant]
     Indication: URINARY TRACT INFECTION
     Dosage: 0.5 G gram(s), daily dose
     Route: 042
     Dates: start: 20120320, end: 20120326
  13. ERTAPENEM [Concomitant]
     Indication: SEPSIS

REACTIONS (5)
  - Urosepsis [Fatal]
  - Urinary tract infection [Fatal]
  - Glomerular filtration rate decreased [Fatal]
  - Urine output decreased [Fatal]
  - Blood sodium decreased [Unknown]
